FAERS Safety Report 7281993-4 (Version None)
Quarter: 2011Q1

REPORT INFORMATION
  Report Type: 
  Country: None (occurrence: None)
  Receive Date: 20110208
  Receipt Date: 20110203
  Transmission Date: 20110831
  Serious: Yes (Life-Threatening, Hospitalization)
  Sender: FDA-Public Use
  Company Number: JP-PFIZER INC-2011025226

PATIENT
  Age: 74 Year
  Sex: Female

DRUGS (4)
  1. PURSENNID [Concomitant]
  2. CRESTOR [Concomitant]
  3. MAGNESIUM OXIDE [Concomitant]
  4. LYRICA [Suspect]

REACTIONS (3)
  - ALTERED STATE OF CONSCIOUSNESS [None]
  - BLOOD AMYLASE INCREASED [None]
  - BLOOD CREATINE PHOSPHOKINASE INCREASED [None]
